FAERS Safety Report 8987440 (Version 1)
Quarter: 2012Q4

REPORT INFORMATION
  Report Type: 
  Country: US (occurrence: US)
  Receive Date: 20121227
  Receipt Date: 20121227
  Transmission Date: 20130627
  Serious: No
  Sender: FDA-Public Use
  Company Number: US-PFIZER INC-2012328115

PATIENT
  Age: 48 Year
  Sex: Female
  Weight: 77.1 kg

DRUGS (1)
  1. ADVIL MIGRAINE [Suspect]
     Indication: MIGRAINE
     Dosage: 400 mg, 2-3 times a day
     Route: 048
     Dates: start: 20121010, end: 201210

REACTIONS (2)
  - Drug ineffective [Unknown]
  - Incorrect dose administered [Unknown]
